FAERS Safety Report 21602459 (Version 1)
Quarter: 2022Q4

REPORT INFORMATION
  Report Type: Spontaneous
  Country: FR (occurrence: FR)
  Receive Date: 20221116
  Receipt Date: 20221116
  Transmission Date: 20230113
  Serious: Yes (Hospitalization, Other)
  Sender: FDA-Public Use
  Company Number: None

PATIENT
  Age: 73 Year
  Sex: Male
  Weight: 75 kg

DRUGS (10)
  1. RIFAMPIN [Suspect]
     Active Substance: RIFAMPIN
     Indication: Disseminated Bacillus Calmette-Guerin infection
     Dosage: 2 TABLETS OF 300MG AT LEAST 30 MINUTES BEFORE THE MORNING MEAL
     Route: 048
     Dates: start: 202209, end: 20221012
  2. RIFAMPIN [Suspect]
     Active Substance: RIFAMPIN
     Dosage: 2 TABLETS OF 300MG AT LEAST 30 MINUTES BEFORE THE MORNING MEAL
     Route: 048
     Dates: start: 20220813, end: 20220829
  3. ISONIAZID [Suspect]
     Active Substance: ISONIAZID
     Indication: Disseminated Bacillus Calmette-Guerin infection
     Dosage: 300 MG, QD
     Route: 048
     Dates: start: 202209, end: 20221012
  4. ISONIAZID [Suspect]
     Active Substance: ISONIAZID
     Dosage: 300 MG, QD
     Route: 048
     Dates: start: 20220813, end: 20220829
  5. SILODOSIN [Concomitant]
     Active Substance: SILODOSIN
     Dosage: 1 TABLET OF 8MG IN THE MORNING
     Route: 048
  6. IRBESARTAN [Concomitant]
     Active Substance: IRBESARTAN
     Dosage: 1 TABLET OF 300 MG IN THE MORNING
     Route: 048
     Dates: end: 2022
  7. HERBALS\SAW PALMETTO [Concomitant]
     Active Substance: HERBALS\SAW PALMETTO
     Dosage: 160 MG CAPSULE IN THE MORNING AND NIGHT
     Route: 048
  8. ESOMEPRAZOLE [Concomitant]
     Active Substance: ESOMEPRAZOLE
     Dosage: IN THE MORNING
     Route: 048
  9. ALGINIC ACID\ALUMINUM HYDROXIDE\SODIUM ALGINATE\SODIUM BICARBONATE [Concomitant]
     Active Substance: ALGINIC ACID\ALUMINUM HYDROXIDE\SODIUM ALGINATE\SODIUM BICARBONATE
     Dosage: 1 SACHET 3 TIMES A DAY
     Route: 048
  10. PAROXETINE HYDROCHLORIDE [Concomitant]
     Active Substance: PAROXETINE HYDROCHLORIDE
     Dosage: 20 MG, QD
     Route: 048

REACTIONS (1)
  - Drug-induced liver injury [Recovering/Resolving]

NARRATIVE: CASE EVENT DATE: 20221011
